FAERS Safety Report 5814885-5 (Version None)
Quarter: 2008Q3

REPORT INFORMATION
  Report Type: 
  Country: None (occurrence: None)
  Receive Date: 20080718
  Receipt Date: 20080717
  Transmission Date: 20090109
  Serious: Yes (Hospitalization)
  Sender: FDA-Public Use
  Company Number: A0732421A

PATIENT
  Sex: Female

DRUGS (1)
  1. ALLI [Suspect]

REACTIONS (7)
  - ASTHENIA [None]
  - EATING DISORDER [None]
  - GASTROENTERITIS VIRAL [None]
  - LAZINESS [None]
  - MEDIAL TIBIAL STRESS SYNDROME [None]
  - PAIN [None]
  - WEIGHT INCREASED [None]
